FAERS Safety Report 7112322-4 (Version None)
Quarter: 2010Q4

REPORT INFORMATION
  Report Type: 
  Country: None (occurrence: None)
  Receive Date: 20101119
  Receipt Date: 20100721
  Transmission Date: 20110411
  Serious: No
  Sender: FDA-Public Use
  Company Number: A0871675A

PATIENT
  Age: 73 Year
  Sex: Male

DRUGS (5)
  1. AVODART [Suspect]
     Indication: BENIGN PROSTATIC HYPERPLASIA
     Dosage: 1CAP PER DAY
     Route: 048
     Dates: start: 20100301
  2. DIOVAN [Concomitant]
  3. ANTI-CHOLESTEROL MEDICATION [Concomitant]
  4. PROTONIX [Concomitant]
  5. PRILOSEC [Concomitant]

REACTIONS (1)
  - HAEMORRHAGE URINARY TRACT [None]
